FAERS Safety Report 4526396-8 (Version None)
Quarter: 2004Q4

REPORT INFORMATION
  Report Type: 
  Country: None (occurrence: None)
  Receive Date: 20041213
  Receipt Date: 20041125
  Transmission Date: 20050328
  Serious: Yes (Death)
  Sender: FDA-Public Use
  Company Number: 2004-CN-00439CN

PATIENT
  Sex: Female

DRUGS (1)
  1. ATROVENT [Suspect]
     Dosage: IN
     Route: 055

REACTIONS (1)
  - DEATH [None]
